FAERS Safety Report 15883037 (Version 1)
Quarter: 2019Q1

REPORT INFORMATION
  Report Type: Spontaneous
  Country: US (occurrence: US)
  Receive Date: 20190129
  Receipt Date: 20190129
  Transmission Date: 20190417
  Serious: No
  Sender: FDA-Public Use
  Company Number: US-TEVA-2019-US-995003

PATIENT
  Sex: Female

DRUGS (1)
  1. ALPRAZOLAM TABLETS [Suspect]
     Active Substance: ALPRAZOLAM
     Indication: ANXIETY
     Dosage: DOSE STRENGTH:  1
     Route: 065
     Dates: start: 1998

REACTIONS (2)
  - Anxiety [Recovered/Resolved]
  - Drug screen negative [Unknown]

NARRATIVE: CASE EVENT DATE: 20180921
